FAERS Safety Report 4324563-X (Version None)
Quarter: 2004Q1

REPORT INFORMATION
  Report Type: 
  Country: None (occurrence: None)
  Receive Date: 20040326
  Receipt Date: 20040226
  Transmission Date: 20041129
  Serious: Yes (Other)
  Sender: FDA-Public Use
  Company Number: PHEH2004US02428

PATIENT
  Age: 32 Year
  Sex: Female

DRUGS (5)
  1. ZELNORM [Suspect]
     Indication: IRRITABLE BOWEL SYNDROME
     Dosage: 6 MG, BID
     Route: 048
     Dates: start: 20040203, end: 20040211
  2. MIRALAX [Concomitant]
  3. FLEET [Concomitant]
     Dosage: UNK, PRN
  4. MULTI-VITAMINS [Concomitant]
  5. PHENERGAN [Concomitant]

REACTIONS (8)
  - ABDOMINAL PAIN [None]
  - BACK PAIN [None]
  - COLONIC POLYP [None]
  - GASTROOESOPHAGEAL REFLUX DISEASE [None]
  - NAUSEA [None]
  - OVARIAN CYST [None]
  - POLYPECTOMY [None]
  - RETCHING [None]
